FAERS Safety Report 5066505-8 (Version None)
Quarter: 2006Q3

REPORT INFORMATION
  Report Type: 
  Country: None (occurrence: None)
  Receive Date: 20060801
  Receipt Date: 20060509
  Transmission Date: 20061208
  Serious: Yes (Hospitalization)
  Sender: FDA-Public Use
  Company Number: FR-BRISTOL-MYERS SQUIBB COMPANY-13371570

PATIENT
  Age: 53 Year
  Sex: Female

DRUGS (4)
  1. ORENCIA [Suspect]
     Indication: RHEUMATOID ARTHRITIS
     Route: 042
     Dates: start: 20040504
  2. METHOTREXATE [Suspect]
     Route: 048
     Dates: start: 20040710
  3. PREDNISOLONE [Concomitant]
     Dates: start: 20050401
  4. MOLSIDOMINE [Concomitant]
     Dates: start: 20060301

REACTIONS (1)
  - ELECTROCARDIOGRAM ST SEGMENT ABNORMAL [None]
